FAERS Safety Report 10290622 (Version 1)
Quarter: 2014Q3

REPORT INFORMATION
  Report Type: Spontaneous
  Country: US (occurrence: US)
  Receive Date: 20140710
  Receipt Date: 20140710
  Transmission Date: 20150326
  Serious: No
  Sender: FDA-Public Use
  Company Number: US-PFIZER INC-2014188380

PATIENT
  Age: 60 Year
  Sex: Female
  Weight: 56.69 kg

DRUGS (1)
  1. ZYVOX [Suspect]
     Active Substance: LINEZOLID
     Indication: STAPHYLOCOCCAL INFECTION
     Dosage: UNK
     Dates: start: 201402, end: 201402

REACTIONS (6)
  - Vision blurred [Recovering/Resolving]
  - Weight decreased [Unknown]
  - Drug ineffective [Unknown]
  - Dysgeusia [Not Recovered/Not Resolved]
  - Nausea [Unknown]
  - Limb discomfort [Unknown]

NARRATIVE: CASE EVENT DATE: 201402
